FAERS Safety Report 4468656-5 (Version None)
Quarter: 2004Q3

REPORT INFORMATION
  Report Type: 
  Country: None (occurrence: None)
  Receive Date: 20040917
  Receipt Date: 20040610
  Transmission Date: 20050211
  Serious: No
  Sender: FDA-Public Use
  Company Number: US-JNJFOC-20040300415

PATIENT
  Age: 28 Year
  Sex: Female
  Weight: 64.8644 kg

DRUGS (3)
  1. ORTHO EVRA [Suspect]
     Indication: CONTRACEPTION
     Dosage: 1 DOSE(S), 3 IN 4 WEEK, TRANSDERMAL
     Route: 062
     Dates: start: 20030814, end: 20040214
  2. AMERGE [Concomitant]
  3. CELEXA [Concomitant]

REACTIONS (3)
  - MIGRAINE [None]
  - NAUSEA [None]
  - VERTIGO [None]
